FAERS Safety Report 11860064 (Version 1)
Quarter: 2015Q4

REPORT INFORMATION
  Report Type: Spontaneous
  Country: US (occurrence: US)
  Receive Date: 20151222
  Receipt Date: 20151222
  Transmission Date: 20160305
  Serious: Yes (Other)
  Sender: FDA-Public Use
  Company Number: US-ASTRAZENECA-2015SF28017

PATIENT
  Sex: Male
  Weight: 52.2 kg

DRUGS (1)
  1. TUDORZA PRESSAIR [Suspect]
     Active Substance: ACLIDINIUM BROMIDE
     Indication: CHRONIC OBSTRUCTIVE PULMONARY DISEASE
     Dosage: 1 PUFF TWICE A DAY
     Route: 055

REACTIONS (7)
  - Weight decreased [Unknown]
  - Dyspnoea [Unknown]
  - Product quality issue [Unknown]
  - Spinal cord disorder [Unknown]
  - Drug dose omission [Unknown]
  - Dysuria [Unknown]
  - Intentional device misuse [Unknown]
